FAERS Safety Report 13038974 (Version 2)
Quarter: 2016Q4

REPORT INFORMATION
  Report Type: Spontaneous
  Country: US (occurrence: US)
  Receive Date: 20161219
  Receipt Date: 20161227
  Transmission Date: 20170207
  Serious: No
  Sender: FDA-Public Use
  Company Number: US-009507513-1612USA002196

PATIENT
  Age: 38 Year
  Sex: Female

DRUGS (11)
  1. UBIDECARENONE [Concomitant]
     Active Substance: UBIDECARENONE
  2. WHEAT GERM [Concomitant]
     Active Substance: WHEAT GERM
  3. VITAMIN D [Concomitant]
     Active Substance: CHOLECALCIFEROL
  4. FOLIC ACID. [Concomitant]
     Active Substance: FOLIC ACID
  5. ASPIRIN. [Concomitant]
     Active Substance: ASPIRIN
  6. DHEA [Concomitant]
     Active Substance: PRASTERONE
  7. MACA [Concomitant]
  8. FOLLISTIM AQ [Suspect]
     Active Substance: FOLLITROPIN
     Indication: INFERTILITY
     Dosage: 75 ML, EVERY 2 DAYS
     Dates: start: 20161129
  9. ROYAL JELLY [Concomitant]
     Active Substance: ROYAL JELLY
  10. OVEX B [Concomitant]
  11. IRON (UNSPECIFIED) (+) MINERALS (UNSPECIFIED) (+) VITAMINS (UNSPECIFIE [Concomitant]
     Active Substance: IRON\MINERALS\VITAMINS

REACTIONS (7)
  - Pyrexia [Not Recovered/Not Resolved]
  - Abdominal pain [Not Recovered/Not Resolved]
  - Chills [Not Recovered/Not Resolved]
  - Pain [Not Recovered/Not Resolved]
  - Nausea [Not Recovered/Not Resolved]
  - Headache [Not Recovered/Not Resolved]
  - Diarrhoea [Not Recovered/Not Resolved]

NARRATIVE: CASE EVENT DATE: 20161203
